FAERS Safety Report 5187228-0 (Version None)
Quarter: 2006Q4

REPORT INFORMATION
  Report Type: 
  Country: None (occurrence: None)
  Receive Date: 20061214
  Receipt Date: 20061205
  Transmission Date: 20070319
  Serious: Yes (Other)
  Sender: FDA-Public Use
  Company Number: 2006150454

PATIENT
  Age: 12 Month
  Sex: Male

DRUGS (1)
  1. XALATAN [Suspect]
     Dosage: OPHTHALMIC
     Route: 047

REACTIONS (2)
  - ACCIDENTAL EXPOSURE [None]
  - DRUG ADMINISTRATION ERROR [None]
